FAERS Safety Report 9919988 (Version 1)
Quarter: 2014Q1

REPORT INFORMATION
  Report Type: Report from Study
  Country: AR (occurrence: AR)
  Receive Date: 20140224
  Receipt Date: 20140224
  Transmission Date: 20141002
  Serious: Yes (Death, Hospitalization, Other)
  Sender: FDA-Public Use
  Company Number: PHHY2014AR021267

PATIENT
  Sex: Male

DRUGS (1)
  1. ONBREZ [Suspect]
     Dosage: UNK UKN, UNK
     Route: 055

REACTIONS (4)
  - Post procedural complication [Fatal]
  - Haemobilia [Unknown]
  - Duodenal neoplasm [Unknown]
  - Vomiting [Unknown]
